FAERS Safety Report 24733647 (Version 1)
Quarter: 2024Q4

REPORT INFORMATION
  Report Type: Spontaneous
  Country: US (occurrence: US)
  Receive Date: 20241213
  Receipt Date: 20241213
  Transmission Date: 20250115
  Serious: No
  Sender: NOVO NORDISK
  Company Number: US-NOVOPROD-1247876

PATIENT
  Age: 90 Year
  Sex: Female

DRUGS (1)
  1. LEVEMIR [Suspect]
     Active Substance: INSULIN DETEMIR
     Indication: Product used for unknown indication
     Dosage: 60 IU
     Route: 058

REACTIONS (4)
  - Arthritis [Unknown]
  - Injection site discolouration [Unknown]
  - Incorrect dose administered [Unknown]
  - Needle issue [Unknown]
